FAERS Safety Report 4972359-8 (Version None)
Quarter: 2006Q2

REPORT INFORMATION
  Report Type: 
  Country: None (occurrence: None)
  Receive Date: 20060413
  Receipt Date: 20050928
  Transmission Date: 20061013
  Serious: Yes (Hospitalization)
  Sender: FDA-Public Use
  Company Number: US-MERCK-0509USA04447

PATIENT
  Age: 55 Year
  Sex: Female

DRUGS (1)
  1. VIOXX [Suspect]
     Route: 048

REACTIONS (5)
  - BRONCHITIS ACUTE [None]
  - BRONCHOSPASM [None]
  - PALPITATIONS [None]
  - TACHYCARDIA [None]
  - TENSION HEADACHE [None]
